FAERS Safety Report 5960299-7 (Version None)
Quarter: 2008Q4

REPORT INFORMATION
  Report Type: 
  Country: None (occurrence: None)
  Receive Date: 20081120
  Receipt Date: 20070822
  Transmission Date: 20090506
  Serious: Yes (Death, Hospitalization, Other)
  Sender: FDA-Public Use
  Company Number: US-ASTRAZENECA-2006UW10829

PATIENT
  Age: 57 Year
  Sex: Male
  Weight: 108.9 kg

DRUGS (57)
  1. SEROQUEL [Suspect]
     Indication: ANXIETY
     Dosage: 200MG - 600MG AT NIGHT
     Route: 048
     Dates: start: 20050802, end: 20060116
  2. SEROQUEL [Suspect]
     Indication: DEPRESSION
     Dosage: 200MG - 600MG AT NIGHT
     Route: 048
     Dates: start: 20050802, end: 20060116
  3. SEROQUEL [Suspect]
     Indication: INSOMNIA
     Dosage: 200MG - 600MG AT NIGHT
     Route: 048
     Dates: start: 20050802, end: 20060116
  4. SEROQUEL [Suspect]
     Route: 048
     Dates: start: 20060716, end: 20061019
  5. SEROQUEL [Suspect]
     Route: 048
     Dates: start: 20060716, end: 20061019
  6. SEROQUEL [Suspect]
     Route: 048
     Dates: start: 20060716, end: 20061019
  7. SEROQUEL [Suspect]
     Route: 048
     Dates: start: 20061019, end: 20061212
  8. SEROQUEL [Suspect]
     Route: 048
     Dates: start: 20061019, end: 20061212
  9. SEROQUEL [Suspect]
     Route: 048
     Dates: start: 20061019, end: 20061212
  10. SEROQUEL [Suspect]
     Route: 048
     Dates: start: 20061212, end: 20070130
  11. SEROQUEL [Suspect]
     Route: 048
     Dates: start: 20061212, end: 20070130
  12. SEROQUEL [Suspect]
     Route: 048
     Dates: start: 20061212, end: 20070130
  13. LEXAPRO [Concomitant]
  14. ZANTAC [Concomitant]
     Dosage: 150MG - 300MG TWO TIMES PER DAY
     Dates: start: 19980101, end: 20070210
  15. PREDNISONE TAB [Concomitant]
     Dates: start: 19970101
  16. NEURONTIN [Concomitant]
     Route: 048
     Dates: start: 19970101
  17. TALWIN [Concomitant]
     Dates: start: 19970101
  18. CELEBREX [Concomitant]
     Dates: start: 19990101
  19. TAGAMET [Concomitant]
     Dates: start: 19970101
  20. AEROBID [Concomitant]
     Dates: start: 19970101
  21. ZOLOFT [Concomitant]
     Dates: start: 20020822
  22. OXYGEN [Concomitant]
     Dosage: 1-2L/MIN
     Dates: start: 19990701
  23. PROVENTIL [Concomitant]
     Dates: start: 19960101
  24. IMITREX [Concomitant]
     Dates: start: 19980101
  25. ZOCOR [Concomitant]
     Dates: start: 19900101
  26. BECLOVENT [Concomitant]
  27. SERZONE [Concomitant]
     Dosage: 150MG AM AND 200MG PM
  28. WELLBUTRIN [Concomitant]
     Dates: start: 19990101
  29. PAXIL [Concomitant]
     Dates: start: 19990101
  30. SINGULAIR [Concomitant]
     Dates: start: 19990101, end: 20070210
  31. HYZAAR [Concomitant]
     Dates: start: 19990101
  32. CYMBALTA [Concomitant]
     Dates: start: 20041206
  33. PROVIGIL [Concomitant]
     Dates: start: 20051111, end: 20061019
  34. PROVIGIL [Concomitant]
     Dates: start: 20061019, end: 20070210
  35. TOPAMAX [Concomitant]
     Dates: start: 20050506, end: 20060901
  36. PROTONIX [Concomitant]
  37. PEPCID [Concomitant]
  38. COLACE [Concomitant]
  39. LANTUS [Concomitant]
     Dosage: 10 UNITS DAILY
     Dates: start: 20050608
  40. XANAX [Concomitant]
  41. VYTORIN [Concomitant]
  42. STARLIX [Concomitant]
     Dates: start: 20050401, end: 20070210
  43. ZETIA [Concomitant]
     Dates: start: 20050401
  44. AVANDIA [Concomitant]
     Dates: start: 20050401
  45. HYDROCHLOROTHIAZIDE [Concomitant]
     Dates: start: 20060607
  46. ULTRAM [Concomitant]
  47. MORPHINE [Concomitant]
     Dosage: 1-3 MG EVERY 2 HOURS
  48. ATROVENT [Concomitant]
  49. DOXYCYCLINE [Concomitant]
  50. AVELOX [Concomitant]
  51. ALBUTEROL [Concomitant]
     Dates: start: 20060801, end: 20070210
  52. SPIRIVA [Concomitant]
     Dates: end: 20070210
  53. ADVAIR DISKUS 100/50 [Concomitant]
     Dates: end: 20070210
  54. ZELNORM [Concomitant]
     Dates: start: 20060801, end: 20070210
  55. MARCAINE [Concomitant]
     Route: 030
  56. SARAPIN [Concomitant]
     Route: 030
  57. LIDODERM [Concomitant]
     Route: 062

REACTIONS (19)
  - ACUTE RESPIRATORY FAILURE [None]
  - ALTERED STATE OF CONSCIOUSNESS [None]
  - ATELECTASIS [None]
  - BRONCHITIS [None]
  - CHEST PAIN [None]
  - CHRONIC OBSTRUCTIVE PULMONARY DISEASE [None]
  - COLLAPSE OF LUNG [None]
  - CONFUSIONAL STATE [None]
  - DIABETES MELLITUS [None]
  - DYSARTHRIA [None]
  - DYSPHAGIA [None]
  - FATIGUE [None]
  - HILAR LYMPHADENOPATHY [None]
  - OESOPHAGITIS [None]
  - PLEURISY [None]
  - PNEUMONITIS [None]
  - PNEUMOTHORAX [None]
  - TREMOR [None]
  - URINARY INCONTINENCE [None]
